FAERS Safety Report 20952706 (Version 1)
Quarter: 2022Q2

REPORT INFORMATION
  Report Type: Spontaneous
  Country: IT (occurrence: IT)
  Receive Date: 20220613
  Receipt Date: 20220613
  Transmission Date: 20220721
  Serious: Yes (Other)
  Sender: FDA-Public Use
  Company Number: IT-ANIPHARMA-2022-IT-000090

PATIENT
  Age: 69 Year
  Sex: Female
  Weight: 54 kg

DRUGS (15)
  1. ANASTROZOLE [Suspect]
     Active Substance: ANASTROZOLE
     Indication: Breast cancer
     Dosage: 1 MG Q_CYCLE
     Route: 048
     Dates: start: 20220117, end: 20220228
  2. FUROSEMIDE [Concomitant]
     Active Substance: FUROSEMIDE
     Dosage: 25 MG
     Route: 048
  3. CHLORTHALIDONE [Concomitant]
     Active Substance: CHLORTHALIDONE
     Dosage: 25 MG
     Route: 048
  4. PERTUZUMAB [Concomitant]
     Active Substance: PERTUZUMAB
     Dosage: 420 MG
     Route: 042
     Dates: start: 20220117, end: 20220228
  5. ATENOLOL [Concomitant]
     Active Substance: ATENOLOL
     Dosage: 100 MG
     Route: 048
  6. ASPIRIN [Concomitant]
     Active Substance: ASPIRIN
     Dosage: 100 MG
     Route: 048
  7. POTASSIUM CHLORIDE [Concomitant]
     Active Substance: POTASSIUM CHLORIDE
     Dosage: 600 MG
     Route: 048
  8. CALCIUM CARBONATE [Concomitant]
     Active Substance: CALCIUM CARBONATE
     Dosage: 1 G
     Route: 048
  9. AMLODIPINE [Concomitant]
     Active Substance: AMLODIPINE BESYLATE
     Dosage: 5 MG
     Route: 048
  10. LEVOCETIRIZINE DIHYDROCHLORIDE [Concomitant]
     Active Substance: LEVOCETIRIZINE DIHYDROCHLORIDE
     Dosage: 5 MG
     Route: 048
  11. TRASTUZUMAB [Concomitant]
     Active Substance: TRASTUZUMAB
     Dosage: 320 MG
     Route: 042
     Dates: start: 20220117, end: 20220228
  12. HYDROCORTISONE [Concomitant]
     Active Substance: HYDROCORTISONE
     Route: 042
     Dates: start: 20220117, end: 20220228
  13. OMEPRAZOLE [Concomitant]
     Active Substance: OMEPRAZOLE
     Dosage: 20 MG
     Route: 048
  14. ALPRAZOLAM [Concomitant]
     Active Substance: ALPRAZOLAM
     Dosage: .25 MG
     Route: 048
  15. CHOLECALCIFEROL [Concomitant]
     Active Substance: CHOLECALCIFEROL
     Dosage: 100000 KIU
     Route: 048

REACTIONS (2)
  - Decreased appetite [Unknown]
  - Abdominal pain [Unknown]

NARRATIVE: CASE EVENT DATE: 20220228
